FAERS Safety Report 6217400-X (Version None)
Quarter: 2009Q2

REPORT INFORMATION
  Report Type: 
  Country: None (occurrence: None)
  Receive Date: 20090608
  Receipt Date: 20080910
  Transmission Date: 20091009
  Serious: No
  Sender: FDA-Public Use
  Company Number: A0747068A

PATIENT
  Age: 56 Year
  Sex: Female

DRUGS (3)
  1. WELLBUTRIN XL [Suspect]
     Indication: DEPRESSION
     Route: 048
     Dates: start: 20080101, end: 20080801
  2. THYROID TAB [Concomitant]
  3. BLOOD PRESSURE MEDICATION [Concomitant]

REACTIONS (3)
  - MUSCLE TWITCHING [None]
  - PALPITATIONS [None]
  - TREMOR [None]
